FAERS Safety Report 17965369 (Version 1)
Quarter: 2020Q2

REPORT INFORMATION
  Report Type: Spontaneous
  Country: US (occurrence: US)
  Receive Date: 20200630
  Receipt Date: 20200630
  Transmission Date: 20200714
  Serious: No
  Sender: FDA-Public Use
  Company Number: US-SA-2020SA164358

PATIENT

DRUGS (7)
  1. ALBUTEROL [SALBUTAMOL] [Concomitant]
     Active Substance: ALBUTEROL
  2. NIZORAL A-D [Concomitant]
     Active Substance: KETOCONAZOLE
  3. PROTOPAM CHLORIDE [Concomitant]
     Active Substance: PRALIDOXIME CHLORIDE
  4. ZYRTEC [Concomitant]
     Active Substance: CETIRIZINE HYDROCHLORIDE
  5. DUPIXENT [Suspect]
     Active Substance: DUPILUMAB
     Indication: DERMATITIS ATOPIC
     Dosage: 300 MG, 1X
     Route: 058
     Dates: start: 20200527, end: 20200527
  6. EUCRISA [Concomitant]
     Active Substance: CRISABOROLE
  7. ELOCON [Concomitant]
     Active Substance: MOMETASONE FUROATE

REACTIONS (1)
  - Incorrect dose administered [Unknown]

NARRATIVE: CASE EVENT DATE: 20200527
